FAERS Safety Report 19375662 (Version 4)
Quarter: 2021Q4

REPORT INFORMATION
  Report Type: Spontaneous
  Country: AU (occurrence: AU)
  Receive Date: 20210604
  Receipt Date: 20211018
  Transmission Date: 20220303
  Serious: Yes (Other)
  Sender: FDA-Public Use
  Company Number: AU-GSKCCFAPAC-CASE-01220032_AE-44861

PATIENT
  Age: 69 Year
  Sex: Female

DRUGS (1)
  1. VENTOLIN [Suspect]
     Active Substance: ALBUTEROL SULFATE
     Indication: Product used for unknown indication
     Dosage: 2 PUFF(S), Z 2 PUFFS EVERY 4 HOURS AS NEEDED)

REACTIONS (4)
  - Respiratory distress [Unknown]
  - Product cleaning inadequate [Unknown]
  - Product dose omission issue [Unknown]
  - Product complaint [Unknown]
